FAERS Safety Report 6903369-9 (Version None)
Quarter: 2010Q3

REPORT INFORMATION
  Report Type: 
  Country: None (occurrence: None)
  Receive Date: 20100803
  Receipt Date: 20080922
  Transmission Date: 20110219
  Serious: No
  Sender: FDA-Public Use
  Company Number: US-PFIZER INC-2008058277

PATIENT
  Sex: Male
  Weight: 95.4 kg

DRUGS (6)
  1. LYRICA [Suspect]
     Indication: INJURY
     Dates: start: 20070101
  2. CYCLOBENZAPRINE [Concomitant]
  3. OXCARBAZEPINE [Concomitant]
  4. HYDROCODONE BITARTRATE [Concomitant]
  5. BUTALBITAL [Concomitant]
  6. DIAZEPAM [Concomitant]

REACTIONS (4)
  - DRUG INEFFECTIVE [None]
  - HANGOVER [None]
  - LOCALISED INFECTION [None]
  - SOMNOLENCE [None]
